FAERS Safety Report 25235594 (Version 1)
Quarter: 2025Q2

REPORT INFORMATION
  Report Type: Spontaneous
  Country: US (occurrence: US)
  Receive Date: 20250424
  Receipt Date: 20250424
  Transmission Date: 20250717
  Serious: No
  Sender: GILEAD
  Company Number: US-GILEAD-2025-0711436

PATIENT
  Age: 74 Year
  Sex: Female

DRUGS (3)
  1. CAYSTON [Suspect]
     Active Substance: AZTREONAM
     Indication: Bronchiectasis
     Route: 065
  2. LEVALBUTEROL [Concomitant]
     Active Substance: LEVALBUTEROL
  3. ACETYLCYSTEINE [Concomitant]
     Active Substance: ACETYLCYSTEINE

REACTIONS (9)
  - Viral infection [Unknown]
  - Diarrhoea [Unknown]
  - Cough [Unknown]
  - Condition aggravated [Unknown]
  - Abnormal faeces [Unknown]
  - Bronchospasm [Recovered/Resolved]
  - Nasopharyngitis [Unknown]
  - Illness [Unknown]
  - Product use in unapproved indication [Unknown]
